FAERS Safety Report 5880138-2 (Version None)
Quarter: 2008Q3

REPORT INFORMATION
  Report Type: 
  Country: None (occurrence: None)
  Receive Date: 20080912
  Receipt Date: 20080902
  Transmission Date: 20090109
  Serious: Yes (Other)
  Sender: FDA-Public Use
  Company Number: JP-PFIZER INC-2008074033

PATIENT
  Age: 13 Year
  Sex: Male

DRUGS (3)
  1. ZYVOX [Suspect]
     Indication: STAPHYLOCOCCAL INFECTION
     Dates: start: 20080101, end: 20080821
  2. RISPERDAL [Concomitant]
     Route: 048
  3. SEROQUEL [Concomitant]
     Route: 048

REACTIONS (4)
  - DELUSION [None]
  - DYSKINESIA [None]
  - HALLUCINATION [None]
  - OPTIC NERVE DISORDER [None]
